FAERS Safety Report 8533269-2 (Version None)
Quarter: 2012Q3

REPORT INFORMATION
  Report Type: 
  Country: None (occurrence: None)
  Receive Date: 20120724
  Receipt Date: 20120713
  Transmission Date: 20120928
  Serious: Yes (Hospitalization)
  Sender: FDA-Public Use
  Company Number: US-ELI_LILLY_AND_COMPANY-US201206003857

PATIENT
  Age: 82 Year
  Sex: Female

DRUGS (8)
  1. FORTEO [Suspect]
     Dosage: 20 UG, QD
     Dates: start: 20120524
  2. SINGULAIR [Concomitant]
     Dosage: UNK, QD
  3. COMBIVENT [Concomitant]
     Dosage: UNK UNK, PRN
  4. MICARDIS [Concomitant]
     Dosage: 40 MG, QD
  5. LIPITOR [Concomitant]
     Dosage: UNK, QD
  6. ASPIRIN [Concomitant]
     Dosage: 81 MG, QD
  7. FORTEO [Suspect]
     Indication: OSTEOPOROSIS
     Dosage: 20 UG, QD
     Dates: start: 20120524
  8. BYSTOLIC [Concomitant]
     Dosage: UNK, QD

REACTIONS (4)
  - CHRONIC OBSTRUCTIVE PULMONARY DISEASE [None]
  - ARTERIAL OCCLUSIVE DISEASE [None]
  - MUSCLE SPASMS [None]
  - VITAMIN D DECREASED [None]
